FAERS Safety Report 25219280 (Version 2)
Quarter: 2025Q2

REPORT INFORMATION
  Report Type: Spontaneous
  Country: US (occurrence: US)
  Receive Date: 20250421
  Receipt Date: 20250501
  Transmission Date: 20250717
  Serious: No
  Sender: ABBVIE
  Company Number: US-ABBVIE-6229240

PATIENT
  Sex: Female

DRUGS (1)
  1. ARMOUR THYROID [Suspect]
     Active Substance: THYROID, PORCINE
     Indication: Hypothyroidism
     Route: 048
     Dates: start: 2025

REACTIONS (7)
  - Posture abnormal [Unknown]
  - Peripheral swelling [Unknown]
  - Abdominal distension [Unknown]
  - Muscle strain [Unknown]
  - Ocular discomfort [Unknown]
  - Hyperhidrosis [Unknown]
  - Joint swelling [Unknown]

NARRATIVE: CASE EVENT DATE: 20250101
